FAERS Safety Report 7290489-5 (Version None)
Quarter: 2011Q1

REPORT INFORMATION
  Report Type: 
  Country: None (occurrence: None)
  Receive Date: 20110214
  Receipt Date: 20110208
  Transmission Date: 20110831
  Serious: No
  Sender: FDA-Public Use
  Company Number: US-PFIZER INC-2010140938

PATIENT
  Sex: Female
  Weight: 60.8 kg

DRUGS (4)
  1. METFORMIN [Concomitant]
     Dosage: UNK, 4X/DAY
  2. HYDROCHLOROTHIAZIDE [Concomitant]
     Dosage: UNK, DAILY
  3. LIPITOR [Suspect]
     Indication: BLOOD CHOLESTEROL INCREASED
     Dosage: 10 MG, DAILY
     Route: 048
     Dates: start: 20080101, end: 20101001
  4. GLIPIZIDE [Concomitant]
     Dosage: UNK

REACTIONS (8)
  - DIZZINESS [None]
  - SCRATCH [None]
  - SKIN ODOUR ABNORMAL [None]
  - FALL [None]
  - PAIN [None]
  - BACK PAIN [None]
  - MALAISE [None]
  - URINE ODOUR ABNORMAL [None]
